FAERS Safety Report 15451474 (Version 1)
Quarter: 2018Q3

REPORT INFORMATION
  Report Type: Spontaneous
  Country: US (occurrence: US)
  Receive Date: 20180927
  Receipt Date: 20180927
  Transmission Date: 20181010
  Serious: Yes (Hospitalization)
  Sender: FDA-Public Use
  Company Number: None

PATIENT
  Age: 64 Year
  Sex: Male
  Weight: 80.74 kg

DRUGS (17)
  1. GOJI BERRIES [Concomitant]
  2. WEST WHEAT GRASS [Concomitant]
     Active Substance: PASCOPYRUM SMITHII POLLEN
  3. POTASSIUM [Concomitant]
     Active Substance: POTASSIUM
  4. MSM [Concomitant]
     Active Substance: DIMETHYL SULFONE
  5. CORDYCEPS [Concomitant]
     Active Substance: HERBALS
  6. ASPRIN [Concomitant]
     Active Substance: ASPIRIN
  7. LEVAQUIN [Suspect]
     Active Substance: LEVOFLOXACIN
     Indication: CHOLECYSTITIS INFECTIVE
  8. SOVEREIGN SILVER [Concomitant]
  9. PABA [Concomitant]
     Active Substance: AMINOBENZOIC ACID
  10. COD LIVER OIL [Concomitant]
     Active Substance: COD LIVER OIL
  11. HAWAIIAN AXTACANTEEN [Concomitant]
  12. GARLIC OIL [Concomitant]
     Active Substance: GARLIC OIL
  13. ACL [Concomitant]
  14. FLAXSEED [Concomitant]
     Active Substance: FLAX SEED
  15. ACSI BERRIES [Concomitant]
  16. LISINOPRIL. [Concomitant]
     Active Substance: LISINOPRIL
  17. MILK THISTLE [Concomitant]
     Active Substance: DIETARY SUPPLEMENT\HERBALS\MILK THISTLE

REACTIONS (1)
  - Pyrexia [None]
